FAERS Safety Report 8608682-5 (Version None)
Quarter: 2012Q3

REPORT INFORMATION
  Report Type: 
  Country: None (occurrence: None)
  Receive Date: 20120809
  Receipt Date: 20120809
  Transmission Date: 20120928
  Serious: Yes (Other)
  Sender: FDA-Public Use
  Company Number: None

PATIENT
  Age: 82 Year
  Sex: Female
  Weight: 52.1637 kg

DRUGS (2)
  1. ERIVEDGE [Suspect]
     Indication: NEOPLASM SKIN
     Dosage: 150 MG QD PO
     Route: 048
     Dates: start: 20120627, end: 20120810
  2. ERIVEDGE [Suspect]

REACTIONS (1)
  - MUSCLE SPASMS [None]
